FAERS Safety Report 5125063-X (Version None)
Quarter: 2006Q4

REPORT INFORMATION
  Report Type: 
  Country: None (occurrence: None)
  Receive Date: 20061011
  Receipt Date: 20061005
  Transmission Date: 20070319
  Serious: Yes (Hospitalization)
  Sender: FDA-Public Use
  Company Number: FR-MERCK-0610FRA00015

PATIENT
  Age: 15 Year
  Sex: Female
  Weight: 49 kg

DRUGS (3)
  1. NOROXIN [Suspect]
     Indication: URINARY TRACT INFECTION
     Route: 048
     Dates: start: 20060906, end: 20060911
  2. PRISTINAMYCIN [Concomitant]
     Indication: INFECTED SEBACEOUS CYST
     Route: 048
     Dates: start: 20060801
  3. TIEMONIUM METHYLSULFATE [Concomitant]
     Indication: ABDOMINAL PAIN
     Route: 048
     Dates: start: 20060906

REACTIONS (1)
  - DIARRHOEA HAEMORRHAGIC [None]
